FAERS Safety Report 17896500 (Version 2)
Quarter: 2020Q2

REPORT INFORMATION
  Report Type: Spontaneous
  Country: US (occurrence: US)
  Receive Date: 20200615
  Receipt Date: 20200618
  Transmission Date: 20200714
  Serious: No
  Sender: FDA-Public Use
  Company Number: US-TEVA-2020-US-1787752

PATIENT

DRUGS (1)
  1. METOPROLOL ER SUCCINATE TEVA [Suspect]
     Active Substance: METOPROLOL SUCCINATE
     Dosage: 12 1/2 MG DAILY
     Route: 065

REACTIONS (6)
  - Dizziness [Unknown]
  - Product physical issue [Unknown]
  - Incorrect dose administered [Unknown]
  - Blood pressure fluctuation [Unknown]
  - Balance disorder [Unknown]
  - Product size issue [Unknown]
